FAERS Safety Report 8358927-4 (Version None)
Quarter: 2012Q2

REPORT INFORMATION
  Report Type: 
  Country: None (occurrence: None)
  Receive Date: 20120515
  Receipt Date: 20120502
  Transmission Date: 20120825
  Serious: No
  Sender: FDA-Public Use
  Company Number: US-BIOGENIDEC-2012BI015567

PATIENT
  Sex: Female

DRUGS (1)
  1. TYSABRI [Suspect]
     Indication: MULTIPLE SCLEROSIS
     Route: 042
     Dates: start: 20080422

REACTIONS (9)
  - COORDINATION ABNORMAL [None]
  - PAIN IN EXTREMITY [None]
  - LIVER DISORDER [None]
  - BACK PAIN [None]
  - URINARY INCONTINENCE [None]
  - NEURALGIA [None]
  - MUSCULOSKELETAL DISORDER [None]
  - MUSCULOSKELETAL STIFFNESS [None]
  - WEIGHT LOSS POOR [None]
